FAERS Safety Report 6110647-2 (Version None)
Quarter: 2009Q1

REPORT INFORMATION
  Report Type: 
  Country: None (occurrence: None)
  Receive Date: 20090310
  Receipt Date: 20090304
  Transmission Date: 20090719
  Serious: Yes (Other)
  Sender: FDA-Public Use
  Company Number: GB-MERCK-0903GBR00019

PATIENT
  Age: 88 Year
  Sex: Female
  Weight: 75 kg

DRUGS (8)
  1. FOSAMAX [Suspect]
     Indication: OSTEOPOROSIS
     Route: 048
     Dates: start: 20081024, end: 20090223
  2. AMOXICILLIN [Concomitant]
     Route: 065
     Dates: start: 20081208
  3. ASPIRIN [Concomitant]
     Route: 065
     Dates: start: 20090223
  4. BENDROFLUMETHIAZIDE [Concomitant]
     Route: 065
     Dates: start: 20030530
  5. BISOPROLOL FUMARATE [Concomitant]
     Route: 065
     Dates: start: 20090223
  6. CALCIUM CARBONATE AND CHOLECALCIFEROL [Concomitant]
     Route: 065
     Dates: start: 20010607
  7. MOMETASONE FUROATE [Concomitant]
     Route: 065
     Dates: start: 20010607
  8. ACETAMINOPHEN [Concomitant]
     Route: 065
     Dates: start: 19981211

REACTIONS (3)
  - ATRIAL FIBRILLATION [None]
  - DYSPNOEA [None]
  - MALAISE [None]
